FAERS Safety Report 7796520-2 (Version None)
Quarter: 2011Q4

REPORT INFORMATION
  Report Type: 
  Country: None (occurrence: None)
  Receive Date: 20111005
  Receipt Date: 20110928
  Transmission Date: 20120403
  Serious: No
  Sender: FDA-Public Use
  Company Number: US-PFIZER INC-2011231507

PATIENT
  Sex: Female
  Weight: 79.365 kg

DRUGS (1)
  1. PRISTIQ [Suspect]
     Indication: DEPRESSION
     Dosage: DAILY
     Route: 048
     Dates: start: 20110901

REACTIONS (3)
  - LIP EXFOLIATION [None]
  - LIP SWELLING [None]
  - CHAPPED LIPS [None]
